FAERS Safety Report 11495869 (Version 14)
Quarter: 2016Q3

REPORT INFORMATION
  Report Type: Report from Study
  Country: BR (occurrence: BR)
  Receive Date: 20150911
  Receipt Date: 20160829
  Transmission Date: 20161109
  Serious: Yes (Other)
  Sender: FDA-Public Use
  Company Number: PHHY2015BR091876

PATIENT
  Sex: Female
  Weight: 57 kg

DRUGS (11)
  1. OMEPRAZOLE. [Concomitant]
     Active Substance: OMEPRAZOLE
     Indication: GASTRIC DISORDER
     Route: 065
  2. DORFLEX [Concomitant]
     Active Substance: CAFFEINE\DIPYRONE\ORPHENADRINE
     Indication: PAIN
     Dosage: 1 DF OF 300 MG, QD
     Route: 048
     Dates: start: 2010
  3. AFINITOR [Suspect]
     Active Substance: EVEROLIMUS
     Indication: BREAST CANCER METASTATIC
     Dosage: 1 DF OF 10 MG, QD
     Route: 048
     Dates: end: 201510
  4. AFINITOR [Suspect]
     Active Substance: EVEROLIMUS
     Dosage: 1 DF OF 5 MG, QD
     Route: 048
     Dates: start: 201510
  5. DIPYRONE [Concomitant]
     Active Substance: DIPYRONE
     Indication: PAIN
     Dosage: 1 DF OF 500 MG, QD
     Route: 048
     Dates: start: 2010
  6. CORDAREX [Concomitant]
     Active Substance: AMIODARONE
     Indication: HYPERTENSION
     Dosage: 2.5 MG, UNK
     Route: 065
  7. AROMASIN [Concomitant]
     Active Substance: EXEMESTANE
     Indication: BREAST CANCER METASTATIC
     Dosage: 1 DF, QD
     Route: 048
     Dates: start: 201506
  8. CHLORTHALIDONE. [Concomitant]
     Active Substance: CHLORTHALIDONE
     Indication: HYPERTENSION
     Dosage: 12.5 MG, UNK
     Route: 065
  9. AMLODIPINE BESYLATE. [Concomitant]
     Active Substance: AMLODIPINE BESYLATE
     Indication: HYPERTENSION
     Dosage: 1 DF OF 5 MG, QD
     Route: 048
     Dates: start: 201505
  10. BUDECORT [Concomitant]
     Active Substance: BUDESONIDE
     Indication: DYSPNOEA
     Route: 065
  11. IMOSEC [Concomitant]
     Active Substance: LOPERAMIDE
     Indication: INSOMNIA
     Route: 065

REACTIONS (62)
  - Tooth loss [Recovered/Resolved]
  - Toothache [Recovering/Resolving]
  - Fracture pain [Unknown]
  - Dry skin [Not Recovered/Not Resolved]
  - Skin swelling [Not Recovered/Not Resolved]
  - General physical health deterioration [Unknown]
  - Skin injury [Unknown]
  - Neck pain [Unknown]
  - Mouth injury [Recovering/Resolving]
  - Chondropathy [Not Recovered/Not Resolved]
  - Hypersensitivity [Recovering/Resolving]
  - Eye pruritus [Not Recovered/Not Resolved]
  - Dyspnoea [Unknown]
  - Teeth brittle [Unknown]
  - Spinal disorder [Unknown]
  - Weight fluctuation [Unknown]
  - Fibromyalgia [Unknown]
  - Depressed mood [Unknown]
  - Feeding disorder [Not Recovered/Not Resolved]
  - Tongue injury [Not Recovered/Not Resolved]
  - Foot fracture [Recovering/Resolving]
  - Pain [Recovering/Resolving]
  - Dysphonia [Recovering/Resolving]
  - Nausea [Not Recovered/Not Resolved]
  - Wound [Recovering/Resolving]
  - Skin exfoliation [Not Recovered/Not Resolved]
  - Tongue discomfort [Not Recovered/Not Resolved]
  - Bone pain [Unknown]
  - Gingival swelling [Recovering/Resolving]
  - Spinal pain [Unknown]
  - Somnolence [Unknown]
  - Skin discolouration [Not Recovered/Not Resolved]
  - Fall [Recovering/Resolving]
  - Lymph node pain [Recovering/Resolving]
  - Pruritus generalised [Not Recovered/Not Resolved]
  - Dry mouth [Not Recovered/Not Resolved]
  - Body height decreased [Unknown]
  - Hypoaesthesia [Unknown]
  - Rash papular [Unknown]
  - Fatigue [Unknown]
  - Saliva altered [Recovering/Resolving]
  - Swelling face [Recovering/Resolving]
  - Headache [Not Recovered/Not Resolved]
  - Dysgeusia [Recovering/Resolving]
  - Pain in jaw [Not Recovered/Not Resolved]
  - Arthralgia [Unknown]
  - Cognitive disorder [Unknown]
  - Nail discolouration [Unknown]
  - Nightmare [Not Recovered/Not Resolved]
  - Decreased immune responsiveness [Not Recovered/Not Resolved]
  - Cough [Not Recovered/Not Resolved]
  - Mobility decreased [Unknown]
  - Back pain [Unknown]
  - Malignant neoplasm progression [Unknown]
  - Mouth haemorrhage [Unknown]
  - Blister [Recovering/Resolving]
  - Facial pain [Not Recovered/Not Resolved]
  - Oral pain [Recovering/Resolving]
  - Metastases to bone [Unknown]
  - Malaise [Not Recovered/Not Resolved]
  - Eye disorder [Unknown]
  - Gingival pain [Unknown]

NARRATIVE: CASE EVENT DATE: 2015
